FAERS Safety Report 12757651 (Version 2)
Quarter: 2017Q1

REPORT INFORMATION
  Report Type: Report from Study
  Country: US (occurrence: US)
  Receive Date: 20160919
  Receipt Date: 20170112
  Transmission Date: 20170428
  Serious: Yes (Death, Other)
  Sender: FDA-Public Use
  Company Number: US-009507513-1609USA008344

PATIENT
  Age: 55 Year
  Sex: Female

DRUGS (1)
  1. KEYTRUDA [Suspect]
     Active Substance: PEMBROLIZUMAB
     Indication: OVARIAN CANCER
     Dosage: 105 MG, Q3W
     Route: 042
     Dates: start: 201608, end: 20160913

REACTIONS (3)
  - Death [Fatal]
  - Product use issue [Unknown]
  - Hospice care [Unknown]

NARRATIVE: CASE EVENT DATE: 201608
